FAERS Safety Report 5227697-0 (Version None)
Quarter: 2007Q1

REPORT INFORMATION
  Report Type: 
  Country: None (occurrence: None)
  Receive Date: 20070202
  Receipt Date: 20070124
  Transmission Date: 20070707
  Serious: Yes (Death, Other)
  Sender: FDA-Public Use
  Company Number: US-ABBOTT-06P-163-0346650-00

PATIENT
  Sex: Female

DRUGS (19)
  1. HUMIRA [Suspect]
     Indication: RHEUMATOID ARTHRITIS
     Route: 058
     Dates: start: 20040503, end: 20060822
  2. PREDNISONE [Concomitant]
     Indication: RHEUMATOID ARTHRITIS
     Route: 048
     Dates: start: 20040501, end: 20060801
  3. DICLOFENAC SODIUM [Concomitant]
     Indication: RHEUMATOID ARTHRITIS
     Route: 048
     Dates: end: 20061004
  4. DICLOFENAC SODIUM [Concomitant]
     Route: 048
  5. HYDROCHLOROTHIAZIDE [Concomitant]
     Indication: HYPERTENSION
     Route: 048
     Dates: end: 20061004
  6. METHOTREXATE [Concomitant]
     Indication: RHEUMATOID ARTHRITIS
     Dates: start: 20031001, end: 20060801
  7. RAMIPRIL [Concomitant]
     Indication: HYPERTENSION
     Route: 048
     Dates: end: 20061004
  8. METOPROLOL TARTRATE [Concomitant]
     Indication: HYPERTENSION
     Route: 048
     Dates: end: 20061004
  9. ATORVASTATIN CALCIUM [Concomitant]
     Indication: HYPERLIPIDAEMIA
     Route: 048
     Dates: end: 20061004
  10. VIACTIN [Concomitant]
     Indication: DRUG USE FOR UNKNOWN INDICATION
     Dates: end: 20061004
  11. CALCIUM [Concomitant]
     Indication: DRUG USE FOR UNKNOWN INDICATION
     Dates: end: 20061004
  12. GLUCOSAMINE [Concomitant]
     Indication: DRUG USE FOR UNKNOWN INDICATION
     Dates: end: 20061004
  13. METOPROLOL TARTRATE [Concomitant]
     Indication: HYPERTENSION
  14. PANTOPRAZOLE SODIUM [Concomitant]
     Indication: PROPHYLAXIS
     Route: 048
     Dates: start: 20060801
  15. ALPRAZOLAM [Concomitant]
     Indication: DRUG USE FOR UNKNOWN INDICATION
     Route: 048
  16. OMEPRAZOLE [Concomitant]
     Indication: PROPHYLAXIS AGAINST GASTROINTESTINAL ULCER
     Route: 048
  17. OXYCODONE HYDROCHLORIDE AND ACETAMINOPHEN [Concomitant]
     Indication: POSTOPERATIVE ANALGESIA
     Dates: start: 20060825
  18. INSULIN [Concomitant]
     Indication: STEROID THERAPY
     Dates: start: 20060801
  19. INSULIN [Concomitant]
     Indication: BLOOD GLUCOSE

REACTIONS (19)
  - ADNEXA UTERI MASS [None]
  - BALANCE DISORDER [None]
  - HEPATIC CYST [None]
  - HILAR LYMPHADENOPATHY [None]
  - HYPOAESTHESIA [None]
  - LARGE CELL LUNG CANCER STAGE IV [None]
  - LOCALISED INFECTION [None]
  - LUNG CARCINOMA CELL TYPE UNSPECIFIED STAGE IV [None]
  - LYMPHADENOPATHY MEDIASTINAL [None]
  - METASTASES TO CENTRAL NERVOUS SYSTEM [None]
  - NODULE [None]
  - PNEUMOTHORAX [None]
  - POSITIVE ROMBERGISM [None]
  - PULMONARY CAVITATION [None]
  - SENSORY DISTURBANCE [None]
  - SENSORY LOSS [None]
  - SMALL CELL LUNG CANCER METASTATIC [None]
  - SOFT TISSUE DISORDER [None]
  - UTERINE LEIOMYOMA [None]
